FAERS Safety Report 10768631 (Version 3)
Quarter: 2015Q2

REPORT INFORMATION
  Report Type: Spontaneous
  Country: CA (occurrence: CA)
  Receive Date: 20150206
  Receipt Date: 20150615
  Transmission Date: 20150821
  Serious: Yes (Other)
  Sender: FDA-Public Use
  Company Number: CA-ROCHE-1534111

PATIENT
  Age: 55 Year
  Sex: Female

DRUGS (2)
  1. XOLAIR [Suspect]
     Active Substance: OMALIZUMAB
     Indication: ASTHMA
     Route: 058
     Dates: start: 20140828
  2. LIPITOR [Concomitant]
     Active Substance: ATORVASTATIN CALCIUM

REACTIONS (7)
  - General physical health deterioration [Unknown]
  - Pneumonia [Unknown]
  - Asthma [Unknown]
  - Fatigue [Unknown]
  - Headache [Unknown]
  - Frustration [Unknown]
  - Insomnia [Unknown]

NARRATIVE: CASE EVENT DATE: 201501
